FAERS Safety Report 10716378 (Version 1)
Quarter: 2015Q1

REPORT INFORMATION
  Report Type: Spontaneous
  Country: US (occurrence: US)
  Receive Date: 20150116
  Receipt Date: 20150116
  Transmission Date: 20150721
  Serious: Yes (Death)
  Sender: FDA-Public Use
  Company Number: US-PFIZER INC-2015008419

PATIENT
  Age: 46 Year
  Sex: Male

DRUGS (6)
  1. QUININE [Suspect]
     Active Substance: QUININE
  2. DIPHENHYDRAMINE [Suspect]
     Active Substance: DIPHENHYDRAMINE
  3. CODEINE [Suspect]
     Active Substance: CODEINE
  4. DEXTROMETHORPHAN HBR [Suspect]
     Active Substance: DEXTROMETHORPHAN HYDROBROMIDE
     Dosage: UNK
  5. HEROIN [Suspect]
     Active Substance: DIACETYLMORPHINE
  6. COCAINE [Suspect]
     Active Substance: COCAINE

REACTIONS (1)
  - Drug abuse [Fatal]

NARRATIVE: CASE EVENT DATE: 2013
